FAERS Safety Report 12444475 (Version 1)
Quarter: 2016Q2

REPORT INFORMATION
  Report Type: Spontaneous
  Country: US (occurrence: US)
  Receive Date: 20160607
  Receipt Date: 20160607
  Transmission Date: 20160815
  Serious: No
  Sender: FDA-Public Use
  Company Number: US-PERRIGO-15US007681

PATIENT
  Age: 67 Year
  Sex: Female
  Weight: 44.44 kg

DRUGS (2)
  1. MINOXIDIL. [Suspect]
     Active Substance: MINOXIDIL
     Indication: ALOPECIA
     Dosage: UNKNOWN, BID
     Route: 061
     Dates: start: 2014
  2. MINOXIDIL. [Suspect]
     Active Substance: MINOXIDIL
     Indication: ANDROGENETIC ALOPECIA

REACTIONS (3)
  - Hair colour changes [Unknown]
  - Off label use [Unknown]
  - Hirsutism [Unknown]

NARRATIVE: CASE EVENT DATE: 2014
